FAERS Safety Report 20350660 (Version 1)
Quarter: 2022Q1

REPORT INFORMATION
  Report Type: Spontaneous
  Country: US (occurrence: US)
  Receive Date: 20220119
  Receipt Date: 20220119
  Transmission Date: 20220423
  Serious: Yes (Hospitalization, Other)
  Sender: FDA-Public Use
  Company Number: US-SANOFI-00931618

PATIENT
  Sex: Male

DRUGS (1)
  1. LANTUS [Suspect]
     Active Substance: INSULIN GLARGINE
     Indication: Type 2 diabetes mellitus
     Dosage: 12 IU
     Route: 058

REACTIONS (4)
  - Diarrhoea [Not Recovered/Not Resolved]
  - COVID-19 [Not Recovered/Not Resolved]
  - Kidney infection [Not Recovered/Not Resolved]
  - Diabetes mellitus inadequate control [Unknown]
